FAERS Safety Report 6244062-8 (Version None)
Quarter: 2009Q2

REPORT INFORMATION
  Report Type: 
  Country: None (occurrence: None)
  Receive Date: 20090623
  Receipt Date: 20090623
  Transmission Date: 20091009
  Serious: Yes (Life-Threatening, Hospitalization)
  Sender: FDA-Public Use
  Company Number: None

PATIENT
  Age: 8 Month
  Sex: Male
  Weight: 6 kg

DRUGS (1)
  1. AMMONIUM CHLORIDE [Suspect]
     Indication: HYPOCHLORAEMIA
     Dosage: 10 MEQ BID IV
     Route: 042
     Dates: start: 20081028, end: 20081104

REACTIONS (8)
  - BLOOD POTASSIUM INCREASED [None]
  - CARDIO-RESPIRATORY ARREST [None]
  - DRUG DISPENSING ERROR [None]
  - DRUG LABEL CONFUSION [None]
  - HYPERKALAEMIA [None]
  - INFUSION RELATED REACTION [None]
  - MEDICATION ERROR [None]
  - METABOLIC ACIDOSIS [None]
